FAERS Safety Report 7495986-5 (Version None)
Quarter: 2011Q2

REPORT INFORMATION
  Report Type: 
  Country: None (occurrence: None)
  Receive Date: 20110523
  Receipt Date: 20110513
  Transmission Date: 20111010
  Serious: Yes (Hospitalization)
  Sender: FDA-Public Use
  Company Number: GB-SANOFI-AVENTIS-2011SA030007

PATIENT
  Age: 75 Year
  Sex: Female
  Weight: 77.2 kg

DRUGS (6)
  1. MULTAQ [Suspect]
     Indication: ATRIAL FIBRILLATION
     Route: 048
     Dates: start: 20110503, end: 20110504
  2. BUMETANIDE [Concomitant]
  3. DILTIAZEM HCL [Concomitant]
  4. ASPIRIN [Concomitant]
  5. BISOPROLOL FUMARATE [Concomitant]
  6. IRBESARTAN [Concomitant]

REACTIONS (5)
  - PALPITATIONS [None]
  - DYSPNOEA [None]
  - EXTRASYSTOLES [None]
  - LETHARGY [None]
  - NAUSEA [None]
